FAERS Safety Report 11075337 (Version 1)
Quarter: 2015Q2

REPORT INFORMATION
  Report Type: Spontaneous
  Country: US (occurrence: None)
  Receive Date: 20150428
  Receipt Date: 20150428
  Transmission Date: 20150821
  Serious: Yes (Disabling)
  Sender: FDA-Public Use
  Company Number: None

PATIENT

DRUGS (1)
  1. DULOXETINE [Suspect]
     Active Substance: DULOXETINE
     Dosage: 1 PILL, ONCE DAILY, TAKEN BY  MOUTH
     Route: 048

REACTIONS (11)
  - Depression [None]
  - Pain [None]
  - Movement disorder [None]
  - Anxiety [None]
  - Fibromyalgia [None]
  - Hot flush [None]
  - Migraine [None]
  - Product substitution issue [None]
  - Drug ineffective [None]
  - Disease recurrence [None]
  - Fatigue [None]

NARRATIVE: CASE EVENT DATE: 20150427
